FAERS Safety Report 25437316 (Version 3)
Quarter: 2025Q3

REPORT INFORMATION
  Report Type: Spontaneous
  Country: US (occurrence: US)
  Receive Date: 20250616
  Receipt Date: 20250825
  Transmission Date: 20251021
  Serious: No
  Sender: SANOFI AVENTIS
  Company Number: US-SA-2025SA167111

PATIENT
  Age: 62 Year
  Sex: Female

DRUGS (12)
  1. KEVZARA [Suspect]
     Active Substance: SARILUMAB
     Indication: Polymyalgia rheumatica
     Dosage: 200 MG, QOW
     Route: 058
     Dates: start: 20250516
  2. VITAMIN D3 [Concomitant]
     Active Substance: CHOLECALCIFEROL
  3. OXCARBAZEPINE [Concomitant]
     Active Substance: OXCARBAZEPINE
  4. LORAZEPAM [Concomitant]
     Active Substance: LORAZEPAM
  5. LORAZEPAM [Concomitant]
     Active Substance: LORAZEPAM
  6. VITAMINS NOS [Concomitant]
     Active Substance: VITAMINS
  7. METOPROLOL SUCCINATE [Concomitant]
     Active Substance: METOPROLOL SUCCINATE
  8. GABAPENTIN [Concomitant]
     Active Substance: GABAPENTIN
  9. DULOXETINE [Concomitant]
     Active Substance: DULOXETINE
  10. ENBREL [Concomitant]
     Active Substance: ETANERCEPT
  11. ENDOCET [Concomitant]
     Active Substance: ACETAMINOPHEN\OXYCODONE HYDROCHLORIDE
  12. METHYLPREDNISOLONE [Concomitant]
     Active Substance: METHYLPREDNISOLONE

REACTIONS (15)
  - Groin pain [Unknown]
  - Injection site haemorrhage [Unknown]
  - Injection site swelling [Recovered/Resolved]
  - Diarrhoea [Unknown]
  - Pain [Unknown]
  - Lymph node pain [Unknown]
  - Oropharyngeal pain [Unknown]
  - Chest pain [Unknown]
  - White blood cell count abnormal [Unknown]
  - Abdominal pain upper [Unknown]
  - Joint swelling [Unknown]
  - Injection site rash [Recovered/Resolved]
  - Injection site erythema [Unknown]
  - Arthralgia [Unknown]
  - Drug ineffective [Unknown]

NARRATIVE: CASE EVENT DATE: 20250101
